FAERS Safety Report 6447867-3 (Version None)
Quarter: 2009Q4

REPORT INFORMATION
  Report Type: 
  Country: None (occurrence: None)
  Receive Date: 20091120
  Receipt Date: 20091109
  Transmission Date: 20100525
  Serious: Yes (Hospitalization)
  Sender: FDA-Public Use
  Company Number: ES-PFIZER INC-2009295123

PATIENT
  Age: 61 Year
  Sex: Female

DRUGS (4)
  1. SUNITINIB MALATE [Suspect]
     Indication: BREAST CANCER
     Dosage: 37.5 MG, 1X/DAY
     Route: 048
     Dates: start: 20091020, end: 20091105
  2. OMEPRAZOLE [Concomitant]
     Dosage: 20 MG, 1X/DAY
     Dates: start: 20080801
  3. OXYCODONE [Concomitant]
     Dosage: 20 MG, UNK
     Dates: start: 20090908
  4. SEGURIL [Concomitant]
     Dosage: UNK
     Route: 048

REACTIONS (1)
  - HAEMORRHAGE [None]
